FAERS Safety Report 6183444-X (Version None)
Quarter: 2009Q2

REPORT INFORMATION
  Report Type: 
  Country: None (occurrence: None)
  Receive Date: 20090506
  Receipt Date: 20090427
  Transmission Date: 20091009
  Serious: Yes (Hospitalization)
  Sender: FDA-Public Use
  Company Number: KV200900463

PATIENT
  Age: 46 Year
  Sex: Male

DRUGS (1)
  1. MORPHINE SULFATE [Suspect]
     Indication: PAIN
     Dosage: 15 MG, 4 TO 5 TABLETS PER DAY, ORAL
     Route: 048

REACTIONS (3)
  - BRADYCARDIA [None]
  - MALAISE [None]
  - OVERDOSE [None]
